FAERS Safety Report 11919803 (Version 1)
Quarter: 2016Q1

REPORT INFORMATION
  Report Type: Spontaneous
  Country: US (occurrence: None)
  Receive Date: 20160114
  Receipt Date: 20160114
  Transmission Date: 20160526
  Serious: No
  Sender: FDA-Public Use
  Company Number: None

PATIENT
  Age: 65 Year
  Sex: Male

DRUGS (11)
  1. OMEGA-3 ACIDS [Concomitant]
     Active Substance: OMEGA-3 FATTY ACIDS
  2. MVI [Concomitant]
     Active Substance: VITAMINS
  3. LISINOPRIL. [Concomitant]
     Active Substance: LISINOPRIL
  4. ASPIRIN. [Concomitant]
     Active Substance: ASPIRIN
  5. COQ10 [Concomitant]
     Active Substance: UBIDECARENONE
  6. METHOTREXATE [Concomitant]
     Active Substance: METHOTREXATE
  7. EFFIENT [Concomitant]
     Active Substance: PRASUGREL HYDROCHLORIDE
  8. REPATHA [Suspect]
     Active Substance: EVOLOCUMAB
     Indication: HYPERLIPIDAEMIA
     Dosage: 1 PEN
     Route: 058
  9. FOLIC ACID. [Concomitant]
     Active Substance: FOLIC ACID
  10. SYNTHROID [Concomitant]
     Active Substance: LEVOTHYROXINE SODIUM
  11. HUMALOG [Concomitant]
     Active Substance: INSULIN LISPRO

REACTIONS (2)
  - Injection site extravasation [None]
  - Underdose [None]

NARRATIVE: CASE EVENT DATE: 20160113
